FAERS Safety Report 20627373 (Version 3)
Quarter: 2022Q2

REPORT INFORMATION
  Report Type: Report from Study
  Country: KR (occurrence: KR)
  Receive Date: 20220323
  Receipt Date: 20220531
  Transmission Date: 20220721
  Serious: Yes (Other)
  Sender: FDA-Public Use
  Company Number: KR-TAKEDA-2022TUS019295

PATIENT
  Sex: Male

DRUGS (19)
  1. BRIGATINIB [Suspect]
     Active Substance: BRIGATINIB
     Indication: Non-small cell lung cancer
     Dosage: 90 MILLIGRAM, QD
     Route: 065
     Dates: start: 20201217, end: 20201222
  2. BRIGATINIB [Suspect]
     Active Substance: BRIGATINIB
     Dosage: 180 MILLIGRAM, QD
     Route: 065
     Dates: start: 20201223
  3. PREDNISOLONE [Concomitant]
     Active Substance: PREDNISOLONE
     Indication: Chronic gastritis
     Dosage: UNK
     Route: 048
     Dates: start: 20201216
  4. NALOXONE HYDROCHLORIDE\OXYCODONE HYDROCHLORIDE [Concomitant]
     Active Substance: NALOXONE HYDROCHLORIDE\OXYCODONE HYDROCHLORIDE
     Indication: Cancer pain
     Dosage: UNK
     Route: 048
     Dates: start: 20210120, end: 20210511
  5. THEOBROMINE [Concomitant]
     Active Substance: THEOBROMINE
     Indication: Rhinitis allergic
     Dosage: UNK
     Route: 048
     Dates: start: 20201216
  6. UMCKAMIN [Concomitant]
     Indication: Bronchitis chronic
     Dosage: UNK
     Route: 048
     Dates: start: 20201216
  7. LANSOPRAZOLE [Concomitant]
     Active Substance: LANSOPRAZOLE
     Indication: Chronic gastritis
     Dosage: 15 MILLIGRAM
     Route: 048
     Dates: start: 20201216
  8. HERBALS [Concomitant]
     Active Substance: HERBALS
     Indication: Chronic gastritis
     Dosage: UNK
     Route: 048
     Dates: start: 20201216, end: 20210511
  9. SYNATURA [Concomitant]
     Indication: Bronchitis chronic
     Dosage: UNK
     Route: 048
     Dates: start: 20201216
  10. FEROBA YOU [Concomitant]
     Indication: Anaemia
     Dosage: UNK
     Route: 048
     Dates: start: 20201216
  11. RUPAFIN [Concomitant]
     Active Substance: RUPATADINE FUMARATE
     Indication: Rhinitis allergic
     Dosage: UNK
     Route: 048
     Dates: start: 20201223, end: 20210511
  12. ACETYLCYSTEINE [Concomitant]
     Active Substance: ACETYLCYSTEINE
     Indication: Bronchitis chronic
     Dosage: 400 MILLIGRAM
     Route: 048
     Dates: start: 20201223
  13. COUGH NOS [Concomitant]
     Active Substance: DEXTROMETHORPHAN HYDROBROMIDE OR DEXTROMETHORPHAN HYDROBROMIDE\DOXYLAMINE SUCCINATE OR DEXTROMETHORP
     Indication: Bronchitis chronic
     Dosage: UNK
     Route: 048
     Dates: start: 20201223, end: 20210316
  14. GANAKHAN [Concomitant]
     Indication: Chronic gastritis
     Dosage: UNK
     Route: 048
     Dates: start: 20210120, end: 20210316
  15. URSODIOL [Concomitant]
     Active Substance: URSODIOL
     Indication: Aspartate aminotransferase increased
     Dosage: UNK
     Route: 048
     Dates: start: 20210120
  16. OMNICEF [Concomitant]
     Active Substance: CEFDINIR
     Indication: Bronchitis chronic
     Dosage: UNK
     Route: 048
     Dates: start: 20210120, end: 20210126
  17. TRANSAMIN [Concomitant]
     Active Substance: TRANEXAMIC ACID
     Indication: Anaemia
     Dosage: UNK
     Route: 048
     Dates: start: 20210120, end: 20210126
  18. BEARSTA [Concomitant]
     Indication: Chronic gastritis
     Dosage: UNK
     Route: 048
     Dates: start: 20201223, end: 20210119
  19. BEARSTA [Concomitant]
     Dosage: UNK
     Route: 048
     Dates: start: 20210120, end: 20210126

REACTIONS (1)
  - Arthritis bacterial [Recovered/Resolved]

NARRATIVE: CASE EVENT DATE: 20210217
